FAERS Safety Report 9593552 (Version 1)
Quarter: 2013Q4

REPORT INFORMATION
  Report Type: Spontaneous
  Country: AT (occurrence: AT)
  Receive Date: 20131004
  Receipt Date: 20131004
  Transmission Date: 20140711
  Serious: Yes (Death)
  Sender: FDA-Public Use
  Company Number: AT-ACTELION-A-CH2013-89233

PATIENT
  Age: 74 Year
  Sex: 0

DRUGS (15)
  1. TRACLEER [Suspect]
     Indication: PULMONARY ARTERIAL HYPERTENSION
     Dosage: 125 MG, UNK
     Route: 048
     Dates: start: 201303
  2. MARCUMAR [Concomitant]
  3. THROMBO ASS [Concomitant]
  4. DAFLON [Concomitant]
  5. ISMN [Concomitant]
  6. OLEOVIT [Concomitant]
  7. SPIRIVA [Concomitant]
  8. CIPRALEX [Concomitant]
  9. SPIROBENE [Concomitant]
  10. LESCOL [Concomitant]
  11. DANCOR [Concomitant]
  12. LASIX [Concomitant]
  13. DILTIAZEM [Concomitant]
  14. EZETROL [Concomitant]
  15. PANTOLOC [Concomitant]

REACTIONS (1)
  - Brain stem haemorrhage [Fatal]
